FAERS Safety Report 8054077-5 (Version None)
Quarter: 2012Q1

REPORT INFORMATION
  Report Type: 
  Country: None (occurrence: None)
  Receive Date: 20120118
  Receipt Date: 20120105
  Transmission Date: 20120608
  Serious: Yes (Hospitalization)
  Sender: FDA-Public Use
  Company Number: US-MYLANLABS-2012S1000587

PATIENT
  Age: 43 Year
  Sex: Male

DRUGS (3)
  1. SIMVASTATIN [Concomitant]
     Route: 065
  2. IBUPROFEN [Suspect]
     Route: 065
  3. LISINOPRIL [Concomitant]
     Route: 065

REACTIONS (3)
  - RENAL TUBULAR NECROSIS [None]
  - RENAL FAILURE ACUTE [None]
  - HEPATIC FAILURE [None]
